FAERS Safety Report 9835981 (Version 14)
Quarter: 2014Q4

REPORT INFORMATION
  Report Type: Report from Study
  Country: CA (occurrence: CA)
  Receive Date: 20140122
  Receipt Date: 20141211
  Transmission Date: 20150529
  Serious: Yes (Death, Hospitalization, Other)
  Sender: FDA-Public Use
  Company Number: PHHY2013CA135597

PATIENT
  Age: 62 Year
  Sex: Male

DRUGS (3)
  1. SANDOSTATIN LAR DEPOT [Suspect]
     Active Substance: OCTREOTIDE ACETATE
     Indication: NEUROENDOCRINE TUMOUR
     Dosage: 30 MG, EVERY 4 WEEKS
     Route: 030
     Dates: start: 20131023
  2. TRAMADOL [Concomitant]
     Active Substance: TRAMADOL
     Indication: PAIN
     Route: 065
  3. IBUPROFEN. [Concomitant]
     Active Substance: IBUPROFEN
     Indication: PRODUCT USED FOR UNKNOWN INDICATION
     Route: 065

REACTIONS (32)
  - Metastases to liver [Recovering/Resolving]
  - Depressed mood [Unknown]
  - Dehydration [Unknown]
  - Faeces discoloured [Not Recovered/Not Resolved]
  - Respiratory tract congestion [Recovered/Resolved]
  - Dysphonia [Not Recovered/Not Resolved]
  - Fall [Unknown]
  - Dysgeusia [Unknown]
  - Pneumonia [Unknown]
  - Hepatic steatosis [Unknown]
  - Malignant neoplasm progression [Unknown]
  - Cough [Unknown]
  - Skin turgor decreased [Unknown]
  - Pulmonary thrombosis [Unknown]
  - Productive cough [Unknown]
  - Wheezing [Unknown]
  - Depressed level of consciousness [Unknown]
  - Throat irritation [Unknown]
  - Balance disorder [Unknown]
  - Heart rate increased [Unknown]
  - Steatorrhoea [Not Recovered/Not Resolved]
  - Fatigue [Unknown]
  - Respiratory rate increased [Unknown]
  - Anxiety [Unknown]
  - Blood pressure increased [Unknown]
  - Death [Fatal]
  - Body temperature increased [Unknown]
  - Obstructive airways disorder [Unknown]
  - Musculoskeletal chest pain [Unknown]
  - Malaise [Unknown]
  - Feeling hot [Unknown]
  - Lid sulcus deepened [Unknown]

NARRATIVE: CASE EVENT DATE: 20140516
